FAERS Safety Report 6428749-X (Version None)
Quarter: 2009Q4

REPORT INFORMATION
  Report Type: 
  Country: None (occurrence: None)
  Receive Date: 20091105
  Receipt Date: 20091027
  Transmission Date: 20100525
  Serious: Yes (Other)
  Sender: FDA-Public Use
  Company Number: BE-AVENTIS-200916745EU

PATIENT
  Sex: Female

DRUGS (9)
  1. ENOXAPARIN SODIUM [Suspect]
     Route: 058
     Dates: start: 20090901, end: 20091023
  2. ACETYLCYSTEINE [Concomitant]
  3. BUMEX [Concomitant]
  4. COVERSYL                           /00790701/ [Concomitant]
  5. ACTRAPID [Concomitant]
  6. DAFLON                             /00426001/ [Concomitant]
  7. ASPEGIC 1000 [Concomitant]
  8. EMCONCOR                           /00802601/ [Concomitant]
  9. CRESTOR [Concomitant]

REACTIONS (1)
  - PEMPHIGOID [None]
